FAERS Safety Report 6387733-5 (Version None)
Quarter: 2009Q4

REPORT INFORMATION
  Report Type: 
  Country: None (occurrence: None)
  Receive Date: 20091005
  Receipt Date: 20090928
  Transmission Date: 20100525
  Serious: Yes (Hospitalization)
  Sender: FDA-Public Use
  Company Number: DE-ROCHE-659315

PATIENT
  Sex: Female
  Weight: 17 kg

DRUGS (2)
  1. MYCOPHENOLATE MOFETIL [Suspect]
     Route: 065
  2. CYCLOSPORINE [Suspect]
     Route: 065

REACTIONS (2)
  - TONSILLAR HYPERTROPHY [None]
  - TRANSPLANT REJECTION [None]
